FAERS Safety Report 12299687 (Version 1)
Quarter: 2016Q2

REPORT INFORMATION
  Report Type: Spontaneous
  Country: US (occurrence: US)
  Receive Date: 20160425
  Receipt Date: 20160425
  Transmission Date: 20160815
  Serious: Yes (Hospitalization, Other)
  Sender: FDA-Public Use
  Company Number: US-TAIHO ONCOLOGY INC-EU-2016-00771

PATIENT
  Age: 64 Year
  Sex: Male

DRUGS (15)
  1. LONSURF [Suspect]
     Active Substance: TIPIRACIL HYDROCHLORIDE\TRIFLURIDINE
     Indication: RECTAL CANCER
     Route: 048
     Dates: start: 20160212, end: 20160410
  2. VENTOLIN HFA [Concomitant]
     Active Substance: ALBUTEROL SULFATE
     Dosage: NI
  3. XARELTO [Suspect]
     Active Substance: RIVAROXABAN
     Indication: THROMBOSIS
     Dosage: NI
  4. ACETYLSALICYLIC ACID [Concomitant]
     Active Substance: ASPIRIN
     Dosage: NI
  5. ECONAZOLE [Concomitant]
     Active Substance: ECONAZOLE
     Dosage: NI
  6. HYDROMORPHONE [Concomitant]
     Active Substance: HYDROMORPHONE
     Dosage: NI
  7. CEFPODOXIME [Concomitant]
     Active Substance: CEFPODOXIME
     Dosage: NI
  8. PARACETAMOL/HYDROCODONE BITARTRATE [Concomitant]
     Dosage: NI
  9. METRONIDAZOLE. [Concomitant]
     Active Substance: METRONIDAZOLE
     Dosage: NI
  10. FERROUS SULFATE. [Concomitant]
     Active Substance: FERROUS SULFATE
     Dosage: NI
  11. HYDROXYCHLOROQUINE [Concomitant]
     Active Substance: HYDROXYCHLOROQUINE
     Dosage: NI
  12. OXYCODONE [Concomitant]
     Active Substance: OXYCODONE
     Dosage: NI
  13. SALBUTAMOL [Concomitant]
     Active Substance: ALBUTEROL
     Dosage: NI
  14. CIPROFLOXACIN. [Concomitant]
     Active Substance: CIPROFLOXACIN
     Dosage: NI
  15. FENTANYL. [Concomitant]
     Active Substance: FENTANYL
     Dosage: NI

REACTIONS (3)
  - Anaemia [Unknown]
  - Disease progression [Unknown]
  - Haemorrhage [Unknown]

NARRATIVE: CASE EVENT DATE: 201604
